FAERS Safety Report 4912890-4 (Version None)
Quarter: 2006Q1

REPORT INFORMATION
  Report Type: 
  Country: None (occurrence: None)
  Receive Date: 20060215
  Receipt Date: 20060208
  Transmission Date: 20060701
  Serious: Yes (Other)
  Sender: FDA-Public Use
  Company Number: PHRM2006FR00747

PATIENT
  Age: 58 Year
  Sex: Male

DRUGS (3)
  1. EFFEXOR [Concomitant]
     Dosage: 2 DF, BID
     Route: 048
     Dates: end: 20051201
  2. ZOLOFT [Concomitant]
     Dosage: 50 MG, QD
     Route: 048
     Dates: start: 20051201
  3. TRILEPTAL [Suspect]
     Indication: PAIN
     Dosage: 150 MG, TID
     Route: 048
     Dates: end: 20051201

REACTIONS (3)
  - ASTHENIA [None]
  - DEPRESSION [None]
  - DRUG WITHDRAWAL SYNDROME [None]
